FAERS Safety Report 13333847 (Version 1)
Quarter: 2017Q1

REPORT INFORMATION
  Report Type: Spontaneous
  Country: US (occurrence: US)
  Receive Date: 20170314
  Receipt Date: 20170314
  Transmission Date: 20170428
  Serious: No
  Sender: FDA-Public Use
  Company Number: US-DEPOMED, INC.-US-2016DEP012920

PATIENT

DRUGS (3)
  1. GRALISE [Suspect]
     Active Substance: GABAPENTIN
     Indication: DYSTONIA
     Dosage: 1800 MG, QD, AT 5 PM
     Route: 048
     Dates: start: 201610
  2. LEVOTHYROXINE. [Concomitant]
     Active Substance: LEVOTHYROXINE
     Indication: THYROID DISORDER
     Dosage: UNK
  3. CLONAZEPAM. [Concomitant]
     Active Substance: CLONAZEPAM
     Indication: MUSCLE SPASMS
     Dosage: UNK

REACTIONS (6)
  - Sudden onset of sleep [Unknown]
  - Inappropriate schedule of drug administration [Unknown]
  - Malaise [Unknown]
  - Drug effect variable [Unknown]
  - Unevaluable event [Unknown]
  - Product use issue [Not Recovered/Not Resolved]

NARRATIVE: CASE EVENT DATE: 2016
